FAERS Safety Report 16828793 (Version 1)
Quarter: 2019Q3

REPORT INFORMATION
  Report Type: Spontaneous
  Country: US (occurrence: US)
  Receive Date: 20190919
  Receipt Date: 20190919
  Transmission Date: 20191005
  Serious: No
  Sender: FDA-Public Use
  Company Number: US-TEVA-2019-US-1108866

PATIENT
  Age: 88 Year
  Sex: Female

DRUGS (1)
  1. ZOLPIDEM TARTRATE ER TEVA [Suspect]
     Active Substance: ZOLPIDEM TARTRATE
     Indication: SLEEP DISORDER
     Route: 065

REACTIONS (2)
  - Asthenia [Unknown]
  - Somnolence [Unknown]
